FAERS Safety Report 9139783 (Version 1)
Quarter: 2013Q1

REPORT INFORMATION
  Report Type: Spontaneous
  Country: US (occurrence: US)
  Receive Date: 20130305
  Receipt Date: 20130305
  Transmission Date: 20140127
  Serious: Yes (Other)
  Sender: FDA-Public Use
  Company Number: US-TEVA-389156USA

PATIENT
  Age: 79 Year
  Sex: Male

DRUGS (1)
  1. ZOLPIDEM [Suspect]
     Indication: SLEEP DISORDER
     Dates: start: 201209, end: 201212

REACTIONS (2)
  - Deafness [Not Recovered/Not Resolved]
  - Weight decreased [Unknown]
